FAERS Safety Report 8553791-2 (Version None)
Quarter: 2012Q3

REPORT INFORMATION
  Report Type: 
  Country: None (occurrence: None)
  Receive Date: 20120725
  Receipt Date: 20120725
  Transmission Date: 20120928
  Serious: Yes (Other)
  Sender: FDA-Public Use
  Company Number: None

PATIENT
  Sex: Female

DRUGS (2)
  1. REBIF [Suspect]
     Indication: MULTIPLE SCLEROSIS
     Dosage: 8.8MCG X 2 WEEKS, 22 MCG X2 WKS 3 TIMES A WEEK SUBCONJUNCTIVAL
     Route: 057
     Dates: start: 20120616, end: 20120720
  2. REBIF [Suspect]
     Dosage: 33MCG X 2 WEEKS 44MCG THEREAFTE  3 TIMES A WEEK SQ
     Route: 058

REACTIONS (7)
  - SOMNOLENCE [None]
  - NECK PAIN [None]
  - CHEST PAIN [None]
  - MUSCLE TIGHTNESS [None]
  - PAIN IN EXTREMITY [None]
  - BACK PAIN [None]
  - CHEST DISCOMFORT [None]
